FAERS Safety Report 15298976 (Version 3)
Quarter: 2018Q3

REPORT INFORMATION
  Report Type: Spontaneous
  Country: DE (occurrence: DE)
  Receive Date: 20180821
  Receipt Date: 20180829
  Transmission Date: 20181010
  Serious: Yes (Other)
  Sender: FDA-Public Use
  Company Number: DE-BAUSCH-BL-2018-022797

PATIENT
  Sex: Female

DRUGS (2)
  1. SYSTEMIC CORTISONE [Concomitant]
     Indication: PUSTULAR PSORIASIS
     Route: 065
     Dates: start: 20180329, end: 20180412
  2. KYNTHEUM [Suspect]
     Active Substance: BRODALUMAB
     Indication: PUSTULAR PSORIASIS
     Route: 058
     Dates: start: 20180524, end: 20180717

REACTIONS (2)
  - Psoriasis [Recovered/Resolved]
  - Product use in unapproved indication [Recovered/Resolved]

NARRATIVE: CASE EVENT DATE: 20180524
